FAERS Safety Report 4657357-6 (Version None)
Quarter: 2005Q2

REPORT INFORMATION
  Report Type: 
  Country: None (occurrence: None)
  Receive Date: 20050411
  Receipt Date: 20030829
  Transmission Date: 20051028
  Serious: Yes (Other)
  Sender: FDA-Public Use
  Company Number: 5929

PATIENT
  Age: 62 Year
  Sex: Male

DRUGS (6)
  1. VINCRISTINE [Suspect]
     Indication: NON-HODGKIN'S LYMPHOMA
     Dosage: 2 MG PER_CYCLE IV
     Route: 042
     Dates: start: 20030604
  2. CYCLOPHOSPHAMIDE [Concomitant]
  3. DOXORUBICIN [Concomitant]
  4. PREDNISONE TAB [Concomitant]
  5. RITUXAN [Concomitant]
  6. NEULASTA [Concomitant]

REACTIONS (2)
  - HYPOAESTHESIA [None]
  - VOCAL CORD PARALYSIS [None]
